FAERS Safety Report 12210135 (Version 2)
Quarter: 2016Q2

REPORT INFORMATION
  Report Type: Spontaneous
  Country: US (occurrence: US)
  Receive Date: 20160325
  Receipt Date: 20160509
  Transmission Date: 20160815
  Serious: No
  Sender: FDA-Public Use
  Company Number: US-PFIZER INC-2016130851

PATIENT
  Age: 63 Year
  Sex: Female

DRUGS (5)
  1. ZOVIRAX [Concomitant]
     Active Substance: ACYCLOVIR
     Dosage: UNK
  2. PREMARIN [Suspect]
     Active Substance: ESTROGENS, CONJUGATED
     Dosage: UNK, 1X/DAY
  3. ATRAX [Concomitant]
     Dosage: UNK
  4. PREMARIN [Suspect]
     Active Substance: ESTROGENS, CONJUGATED
     Indication: ARTIFICIAL MENOPAUSE
     Dosage: 1.25 MG, 1X/DAY
  5. XANAX [Concomitant]
     Active Substance: ALPRAZOLAM
     Dosage: UNK

REACTIONS (7)
  - Therapeutic response unexpected [Recovered/Resolved]
  - Pre-existing condition improved [Recovered/Resolved]
  - Expired product administered [Recovered/Resolved]
  - Insomnia [Recovered/Resolved]
  - Wrong technique in product usage process [Recovered/Resolved]
  - Hot flush [Not Recovered/Not Resolved]
  - Hormone level abnormal [Not Recovered/Not Resolved]
